FAERS Safety Report 24659759 (Version 1)
Quarter: 2024Q4

REPORT INFORMATION
  Report Type: Spontaneous
  Country: GB (occurrence: GB)
  Receive Date: 20241125
  Receipt Date: 20241125
  Transmission Date: 20250115
  Serious: Yes (Other)
  Sender: TORRENT PHARMA INC.
  Company Number: None

PATIENT
  Age: 74 Year
  Sex: Female

DRUGS (1)
  1. MONTELUKAST [Suspect]
     Active Substance: MONTELUKAST
     Indication: Asthma
     Dosage: UNKNOWN
     Route: 065

REACTIONS (4)
  - Product prescribing error [Unknown]
  - Eye swelling [Recovered/Resolved with Sequelae]
  - Blindness [Unknown]
  - Eosinophilic granulomatosis with polyangiitis [Unknown]
